FAERS Safety Report 5206172-3 (Version None)
Quarter: 2006Q4

REPORT INFORMATION
  Report Type: 
  Country: None (occurrence: None)
  Receive Date: 20061026
  Receipt Date: 20060914
  Transmission Date: 20070319
  Serious: No
  Sender: FDA-Public Use
  Company Number: 2006113598

PATIENT
  Age: 85 Year
  Sex: Male
  Weight: 88.4514 kg

DRUGS (3)
  1. LYRICA [Suspect]
     Indication: DIABETIC NEUROPATHY
     Dosage: 150 MG (50 MG 3 IN 1 D), ORAL
     Route: 048
     Dates: start: 20060801, end: 20060801
  2. PLAVIX [Concomitant]
  3. ANTIHYPERTENSIVES (ANTIHYPERTENSIVES) [Concomitant]

REACTIONS (3)
  - FALL [None]
  - MUSCULAR WEAKNESS [None]
  - VISUAL DISTURBANCE [None]
